FAERS Safety Report 8400507-6 (Version None)
Quarter: 2012Q2

REPORT INFORMATION
  Report Type: 
  Country: None (occurrence: None)
  Receive Date: 20120531
  Receipt Date: 20120516
  Transmission Date: 20120825
  Serious: No
  Sender: FDA-Public Use
  Company Number: US-ASTRAZENECA-2012SE23687

PATIENT
  Age: 54 Year
  Sex: Female

DRUGS (2)
  1. SEROQUEL [Suspect]
     Route: 048
  2. SEROQUEL [Suspect]
     Indication: BIPOLAR I DISORDER
     Route: 048

REACTIONS (6)
  - EMOTIONAL DISTRESS [None]
  - ANXIETY [None]
  - ALOPECIA [None]
  - MEMORY IMPAIRMENT [None]
  - BALANCE DISORDER [None]
  - INTENTIONAL DRUG MISUSE [None]
